FAERS Safety Report 5571072-6 (Version None)
Quarter: 2007Q4

REPORT INFORMATION
  Report Type: 
  Country: None (occurrence: None)
  Receive Date: 20071221
  Receipt Date: 20071218
  Transmission Date: 20080405
  Serious: Yes (Hospitalization)
  Sender: FDA-Public Use
  Company Number: CN-ASTRAZENECA-2007AP08008

PATIENT
  Age: 44 Year
  Sex: Female

DRUGS (7)
  1. ROPIVACAINE [Suspect]
     Indication: SPINAL ANAESTHESIA
     Dosage: SPINAL
     Route: 008
  2. ROPIVACAINE [Suspect]
     Indication: EPIDURAL ANAESTHESIA
     Dosage: SPINAL
     Route: 008
  3. ROPIVACAINE [Suspect]
     Dosage: EPIDURAL
  4. ROPIVACAINE [Suspect]
     Dosage: EPIDURAL
  5. GLUCOSE [Concomitant]
     Indication: ANAESTHESIA
  6. SUFENTANIL CITRATE [Concomitant]
  7. ONDASETRON [Concomitant]

REACTIONS (1)
  - NERVOUS SYSTEM DISORDER [None]
